FAERS Safety Report 4531158-1 (Version None)
Quarter: 2004Q4

REPORT INFORMATION
  Report Type: 
  Country: None (occurrence: None)
  Receive Date: 20041130
  Receipt Date: 20040614
  Transmission Date: 20050328
  Serious: Yes (Hospitalization, Disabling, Other)
  Sender: FDA-Public Use
  Company Number: WAES 0406USA01475

PATIENT
  Age: 88 Year
  Sex: Female
  Weight: 58.9676 kg

DRUGS (8)
  1. FOSAMAX [Suspect]
     Indication: OSTEOPOROSIS
     Dosage: 70MG/WKY/PO
     Route: 048
     Dates: start: 20020512, end: 20040610
  2. ALLEGRA [Concomitant]
  3. CELEXA [Concomitant]
  4. RHINOCORT [Concomitant]
  5. TUMS [Concomitant]
  6. ALPRAZOLAM [Concomitant]
  7. ASPIRIN [Concomitant]
  8. MULTIVITAMIN [Concomitant]

REACTIONS (3)
  - EROSIVE OESOPHAGITIS [None]
  - OESOPHAGEAL OBSTRUCTION [None]
  - OESOPHAGEAL STENOSIS [None]
